FAERS Safety Report 8188874-2 (Version None)
Quarter: 2012Q1

REPORT INFORMATION
  Report Type: 
  Country: None (occurrence: None)
  Receive Date: 20120306
  Receipt Date: 20120227
  Transmission Date: 20120608
  Serious: Yes (Death)
  Sender: FDA-Public Use
  Company Number: DE-ROCHE-1017426

PATIENT
  Sex: Female
  Weight: 84 kg

DRUGS (15)
  1. XELODA [Suspect]
     Indication: BREAST CANCER
     Route: 048
     Dates: start: 20111114
  2. GRANISETRON [Concomitant]
     Dates: start: 20111129, end: 20111204
  3. CLEMASTINE FUMARATE [Concomitant]
     Dates: start: 20111121, end: 20111121
  4. RAMIPRIL [Concomitant]
     Dosage: 5/25MG
     Route: 048
  5. RAMIPRIL [Concomitant]
     Route: 048
  6. LEVOTHYROXINE SODIUM [Concomitant]
     Route: 048
  7. GRANISETRON [Concomitant]
     Dates: start: 20111121, end: 20111121
  8. PACLITAXEL [Suspect]
     Indication: BREAST CANCER
     Route: 042
     Dates: start: 20111114, end: 20111128
  9. EMEND [Concomitant]
     Dates: start: 20111121, end: 20111121
  10. FLUTICASONE PROPIONATE/SALMETEROL [Concomitant]
     Dosage: 100/500UG
  11. DEXAMETHASONE [Concomitant]
     Dates: start: 20111121, end: 20111121
  12. DEXAMETHASONE [Concomitant]
     Dates: start: 20111129, end: 20111204
  13. EMEND [Concomitant]
     Dates: start: 20111122, end: 20111123
  14. ATENOLOL [Concomitant]
     Route: 048
  15. DEXAMETHASONE [Concomitant]
     Dates: start: 20111122, end: 20111123

REACTIONS (10)
  - DRUG INTOLERANCE [None]
  - RENAL FAILURE [None]
  - DIHYDROPYRIMIDINE DEHYDROGENASE DEFICIENCY [None]
  - MULTI-ORGAN FAILURE [None]
  - VOMITING [None]
  - DIARRHOEA [None]
  - NAUSEA [None]
  - HEPATIC FAILURE [None]
  - CARDIAC FAILURE [None]
  - SEPSIS [None]
